FAERS Safety Report 5815039-9 (Version None)
Quarter: 2008Q3

REPORT INFORMATION
  Report Type: 
  Country: None (occurrence: None)
  Receive Date: 20080718
  Receipt Date: 20080714
  Transmission Date: 20090109
  Serious: Yes (Hospitalization)
  Sender: FDA-Public Use
  Company Number: B0529008A

PATIENT
  Age: 53 Year
  Sex: Male

DRUGS (5)
  1. SULTANOL [Suspect]
     Indication: ASTHMA
     Route: 055
     Dates: start: 20060724, end: 20080601
  2. ONON [Concomitant]
     Route: 048
  3. PREDONINE [Concomitant]
     Route: 065
  4. SEREVENT [Concomitant]
     Route: 055
  5. QVAR 40 [Concomitant]
     Route: 055

REACTIONS (1)
  - ASTHENIA [None]
